FAERS Safety Report 8173463-6 (Version None)
Quarter: 2012Q1

REPORT INFORMATION
  Report Type: 
  Country: None (occurrence: None)
  Receive Date: 20120224
  Receipt Date: 20120214
  Transmission Date: 20120608
  Serious: Yes (Hospitalization, Other)
  Sender: FDA-Public Use
  Company Number: TPA2012A00151

PATIENT
  Age: 74 Year
  Sex: Female
  Weight: 68.0396 kg

DRUGS (10)
  1. AVAPRO [Concomitant]
  2. HYDROCHLOROTHIAZIDE [Concomitant]
  3. AMLODIPINE [Concomitant]
  4. ACTOS [Suspect]
     Indication: TYPE 2 DIABETES MELLITUS
     Dosage: 15 MG, 1 IN 1 D, PER ORAL, 15 MG, 1 IN 1 D, PER ORAL, 15 MG, 1 IN 1 D, PER ORAL
     Route: 048
     Dates: start: 20061220, end: 20081103
  5. ACTOS [Suspect]
     Indication: TYPE 2 DIABETES MELLITUS
     Dosage: 15 MG, 1 IN 1 D, PER ORAL, 15 MG, 1 IN 1 D, PER ORAL, 15 MG, 1 IN 1 D, PER ORAL
     Route: 048
     Dates: start: 20081101, end: 20081201
  6. ACTOS [Suspect]
     Indication: TYPE 2 DIABETES MELLITUS
     Dosage: 15 MG, 1 IN 1 D, PER ORAL, 15 MG, 1 IN 1 D, PER ORAL, 15 MG, 1 IN 1 D, PER ORAL
     Route: 048
     Dates: start: 20090105, end: 20090106
  7. VITAMIN D [Concomitant]
  8. LEVAQUIN [Concomitant]
  9. DIOVAN [Concomitant]
  10. ARANESP [Concomitant]

REACTIONS (3)
  - BLADDER TRANSITIONAL CELL CARCINOMA [None]
  - NEOPLASM RECURRENCE [None]
  - CYSTITIS [None]
